FAERS Safety Report 21949539 (Version 1)
Quarter: 2023Q1

REPORT INFORMATION
  Report Type: Report from Study
  Country: US (occurrence: US)
  Receive Date: 20230203
  Receipt Date: 20230203
  Transmission Date: 20230418
  Serious: Yes (Other)
  Sender: FDA-Public Use
  Company Number: US-ABBVIE-4293370

PATIENT
  Sex: Male

DRUGS (1)
  1. RINVOQ [Suspect]
     Active Substance: UPADACITINIB
     Indication: Rheumatoid arthritis
     Route: 048
     Dates: start: 20221015

REACTIONS (6)
  - Systemic lupus erythematosus [Unknown]
  - Spinal disorder [Unknown]
  - Motion sickness [Unknown]
  - Rheumatoid arthritis [Unknown]
  - Pain [Unknown]
  - Peripheral swelling [Unknown]
